FAERS Safety Report 4876967-4 (Version None)
Quarter: 2005Q4

REPORT INFORMATION
  Report Type: 
  Country: None (occurrence: None)
  Receive Date: 20051206
  Receipt Date: 20050921
  Transmission Date: 20060501
  Serious: No
  Sender: FDA-Public Use
  Company Number: USA0509108841

PATIENT
  Age: 32 Year
  Sex: Female

DRUGS (3)
  1. CYMBALTA [Suspect]
     Indication: NEURALGIA
     Dosage: 30 MG DAY
     Dates: start: 20050911
  2. NEURONTIN [Concomitant]
  3. NORTRIPTYLINE HCL [Concomitant]

REACTIONS (2)
  - APATHY [None]
  - FLAT AFFECT [None]
